FAERS Safety Report 15767986 (Version 2)
Quarter: 2019Q1

REPORT INFORMATION
  Report Type: Spontaneous
  Country: DE (occurrence: DE)
  Receive Date: 20181227
  Receipt Date: 20190116
  Transmission Date: 20190417
  Serious: Yes (Other)
  Sender: FDA-Public Use
  Company Number: DE-PFIZER INC-2014139404

PATIENT
  Age: 38 Year
  Sex: Female

DRUGS (2)
  1. CISPLATIN. [Suspect]
     Active Substance: CISPLATIN
     Indication: CHOLANGIOCARCINOMA
     Dosage: 50 MG/M2 ON DAY 1, ON DAYS 1 AND 8 OF A 21-DAY CYCLE
  2. GEMCITABINE HYDROCHLORIDE. [Suspect]
     Active Substance: GEMCITABINE HYDROCHLORIDE
     Indication: CHOLANGIOCARCINOMA
     Dosage: 1,000 MG/M2 ON DAYS 1 AND 8 OF A 21-DAY CYCLE

REACTIONS (2)
  - Leukopenia [Unknown]
  - Haematotoxicity [Unknown]
